FAERS Safety Report 23946570 (Version 1)
Quarter: 2024Q2

REPORT INFORMATION
  Report Type: Report from Study
  Country: US (occurrence: US)
  Receive Date: 20240606
  Receipt Date: 20240606
  Transmission Date: 20240715
  Serious: No
  Sender: FDA-Public Use
  Company Number: US-SPRINGWORKS THERAPEUTICS-SW-001369

PATIENT
  Age: 39 Year
  Sex: Female

DRUGS (1)
  1. NIROGACESTAT [Suspect]
     Active Substance: NIROGACESTAT
     Indication: Desmoid tumour
     Dosage: 150 MILLIGRAM, BID
     Route: 048
     Dates: start: 20240220

REACTIONS (6)
  - Gastrointestinal disorder [Unknown]
  - Hot flush [Unknown]
  - Liver function test increased [Unknown]
  - Nausea [Unknown]
  - Rash [Unknown]
  - Stomatitis [Recovered/Resolved]

NARRATIVE: CASE EVENT DATE: 20240305
